FAERS Safety Report 23272222 (Version 1)
Quarter: 2023Q4

REPORT INFORMATION
  Report Type: Spontaneous
  Country: US (occurrence: US)
  Receive Date: 20231207
  Receipt Date: 20231207
  Transmission Date: 20240110
  Serious: No
  Sender: FDA-Public Use
  Company Number: US-MYLANLABS-2023M1127860

PATIENT
  Age: 54 Year
  Sex: Female
  Weight: 138.8 kg

DRUGS (2)
  1. AMLODIPINE [Suspect]
     Active Substance: AMLODIPINE BESYLATE
     Indication: Sleep apnoea syndrome
     Dosage: 5 MILLIGRAM
     Route: 065
     Dates: start: 20231122
  2. AMBIEN [Suspect]
     Active Substance: ZOLPIDEM TARTRATE
     Indication: Sleep apnoea syndrome
     Dosage: 10 MILLIGRAM
     Route: 065

REACTIONS (4)
  - Somnolence [Unknown]
  - Asthenia [Unknown]
  - Fatigue [Unknown]
  - Drug ineffective for unapproved indication [Unknown]
